FAERS Safety Report 14497230 (Version 1)
Quarter: 2018Q1

REPORT INFORMATION
  Report Type: Spontaneous
  Country: US (occurrence: US)
  Receive Date: 20180207
  Receipt Date: 20180207
  Transmission Date: 20180509
  Serious: No
  Sender: FDA-Public Use
  Company Number: US-ASTRAZENECA-2018SE12859

PATIENT
  Sex: Male

DRUGS (3)
  1. SYMBICORT [Suspect]
     Active Substance: BUDESONIDE\FORMOTEROL FUMARATE DIHYDRATE
     Route: 055
  2. OMEPRAZOLE. [Suspect]
     Active Substance: OMEPRAZOLE
     Dosage: 40.0MG UNKNOWN
     Route: 048
  3. ANTICOAGULANT CITRATE DEXTROSE SOLUTION (ACD) NOS [Concomitant]
     Active Substance: CITRIC ACID MONOHYDRATE\DEXTROSE\SODIUM CITRATE
     Route: 065

REACTIONS (8)
  - Sleep disorder [Unknown]
  - Heart rate irregular [Unknown]
  - Chest pain [Unknown]
  - Oropharyngeal pain [Unknown]
  - Intentional product misuse [Unknown]
  - Hypertension [Unknown]
  - Tongue discolouration [Unknown]
  - Chronic obstructive pulmonary disease [Unknown]
